FAERS Safety Report 24616602 (Version 1)
Quarter: 2024Q4

REPORT INFORMATION
  Report Type: Spontaneous
  Country: US (occurrence: US)
  Receive Date: 20241114
  Receipt Date: 20241114
  Transmission Date: 20250115
  Serious: Yes (Hospitalization)
  Sender: ELI LILLY AND COMPANY
  Company Number: US-ELI_LILLY_AND_COMPANY-US202411004313

PATIENT
  Age: 44 Year
  Sex: Female

DRUGS (4)
  1. ADCIRCA [Suspect]
     Active Substance: TADALAFIL
     Indication: Pulmonary arterial hypertension
     Dosage: 40 MG, BID
     Route: 048
     Dates: start: 202405
  2. REMODULIN [Suspect]
     Active Substance: TREPROSTINIL
     Indication: Pulmonary arterial hypertension
     Dosage: 22 NG/KG/MIN, CONTINUOUS
     Route: 042
     Dates: start: 202405
  3. ORENITRAM [Suspect]
     Active Substance: TREPROSTINIL
     Indication: Pulmonary arterial hypertension
     Dosage: 6 MG, TID
     Route: 048
     Dates: start: 202409
  4. ORENITRAM [Suspect]
     Active Substance: TREPROSTINIL
     Dosage: 5 MG, TID
     Route: 048

REACTIONS (4)
  - Diarrhoea [Unknown]
  - Vomiting [Unknown]
  - Skin irritation [Not Recovered/Not Resolved]
  - Off label use [Unknown]
